FAERS Safety Report 7476350-1 (Version None)
Quarter: 2011Q2

REPORT INFORMATION
  Report Type: 
  Country: None (occurrence: None)
  Receive Date: 20110512
  Receipt Date: 20101021
  Transmission Date: 20111010
  Serious: Yes (Hospitalization)
  Sender: FDA-Public Use
  Company Number: A0889245A

PATIENT
  Sex: Female
  Weight: 135.6 kg

DRUGS (16)
  1. NAPROXEN [Concomitant]
  2. ALLOPURINOL [Concomitant]
  3. FLUOXETINE [Concomitant]
  4. OXYCODONE WITH APAP [Concomitant]
  5. LISINOPRIL [Concomitant]
  6. VICODIN [Concomitant]
  7. METFORMIN HCL [Concomitant]
  8. PAROXETINE HCL [Concomitant]
  9. CLONIDINE [Concomitant]
  10. AVANDIA [Suspect]
     Indication: DIABETES MELLITUS
     Route: 048
     Dates: start: 20050329, end: 20080907
  11. AMITRIPTYLINE HCL [Concomitant]
  12. PREMARIN [Concomitant]
  13. ASPIRIN [Concomitant]
  14. GLUCOTROL [Concomitant]
  15. GLIPIZIDE [Concomitant]
  16. ENALAPRIL [Concomitant]

REACTIONS (2)
  - CORONARY ARTERY DISEASE [None]
  - CARDIAC FAILURE CONGESTIVE [None]
